FAERS Safety Report 7776834-2 (Version None)
Quarter: 2011Q3

REPORT INFORMATION
  Report Type: 
  Country: None (occurrence: None)
  Receive Date: 20110926
  Receipt Date: 20110914
  Transmission Date: 20111222
  Serious: Yes (Hospitalization)
  Sender: FDA-Public Use
  Company Number: US-CELGENEUS-163-21880-11090145

PATIENT
  Sex: Male
  Weight: 50.12 kg

DRUGS (11)
  1. CETUXIMAB [Suspect]
     Indication: HEAD AND NECK CANCER
     Dosage: 500 MILLIGRAM/SQ. METER
     Route: 041
     Dates: start: 20110627, end: 20110808
  2. ZOFRAN [Concomitant]
     Dosage: 8 MILLIGRAM
     Route: 065
  3. VICODIN [Concomitant]
     Dosage: 5-500MG
     Route: 065
  4. PRILOSEC [Concomitant]
     Dosage: 20 MILLIGRAM
     Route: 065
  5. FISH OIL [Concomitant]
     Dosage: 1000 MILLIGRAM
     Route: 065
  6. ASPIRIN [Concomitant]
     Dosage: 81 MILLIGRAM
     Route: 065
  7. REVLIMID [Suspect]
     Indication: HEAD AND NECK CANCER
     Dosage: 25 MILLIGRAM
     Route: 048
     Dates: start: 20110627, end: 20110817
  8. COMPAZINE [Concomitant]
     Dosage: 10 MILLIGRAM
     Route: 065
  9. REMERON [Concomitant]
     Dosage: 15 MILLIGRAM
     Route: 065
  10. TENORMIN [Concomitant]
     Dosage: 25 MILLIGRAM
     Route: 065
  11. GARLIC [Concomitant]
     Dosage: 500 MILLIGRAM
     Route: 065

REACTIONS (4)
  - HEAD AND NECK CANCER [None]
  - FAILURE TO THRIVE [None]
  - HYPOTENSION [None]
  - DYSPNOEA [None]
